FAERS Safety Report 9349063 (Version 1)
Quarter: 2013Q2

REPORT INFORMATION
  Report Type: Report from Study
  Country: US (occurrence: US)
  Receive Date: 20130614
  Receipt Date: 20130614
  Transmission Date: 20140414
  Serious: Yes (Other)
  Sender: FDA-Public Use
  Company Number: US-ABBOTT-13P-163-1100902-00

PATIENT
  Age: 23 Year
  Sex: Male
  Weight: 76.27 kg

DRUGS (6)
  1. HUMIRA [Suspect]
     Indication: COLITIS ULCERATIVE
     Dates: start: 201103
  2. ADDERALL [Concomitant]
     Indication: ATTENTION DEFICIT/HYPERACTIVITY DISORDER
     Dosage: 20 MG ONE A DAY
  3. ASPIRIN [Concomitant]
     Indication: PRODUCT USED FOR UNKNOWN INDICATION
     Dosage: 1 DAILY
  4. LEVBID [Concomitant]
     Indication: ABDOMINAL PAIN
     Dosage: 2 DAILY
  5. LEVBID [Concomitant]
     Indication: MUSCLE SPASMS
  6. LEVBID [Concomitant]
     Indication: DIARRHOEA

REACTIONS (3)
  - Joint injury [Unknown]
  - Injection site haemorrhage [Not Recovered/Not Resolved]
  - Device malfunction [Unknown]
